FAERS Safety Report 9471151 (Version 2)
Quarter: 2013Q3

REPORT INFORMATION
  Report Type: Spontaneous
  Country: US (occurrence: US)
  Receive Date: 20130822
  Receipt Date: 20130927
  Transmission Date: 20140515
  Serious: No
  Sender: FDA-Public Use
  Company Number: US-BAYER-2013-101311

PATIENT
  Age: 30 Year
  Sex: Female
  Weight: 81 kg

DRUGS (2)
  1. MIRENA [Suspect]
     Indication: CONTRACEPTION
     Dosage: 20 MCG/24HR, CONT
     Route: 015
     Dates: start: 20130717, end: 20130805
  2. MIRENA [Suspect]
     Indication: CONTRACEPTION

REACTIONS (1)
  - Device expulsion [None]
